FAERS Safety Report 8390346-7 (Version None)
Quarter: 2012Q1

REPORT INFORMATION
  Report Type: 
  Country: None (occurrence: None)
  Receive Date: 20120323
  Receipt Date: 20110309
  Transmission Date: 20120608
  Serious: Yes (Hospitalization)
  Sender: FDA-Public Use
  Company Number: 163-21880-11031267

PATIENT
  Age: 60 Year
  Sex: Female

DRUGS (4)
  1. REVLIMID [Suspect]
     Indication: MULTIPLE MYELOMA
     Dosage: 25 MG, 1 IN 1 D, PO 15 MG, 1 IN 1 D, PO 25 MG, DAILY ON DAYS 1-21 OF 28 DAY CYCLE, PO
     Route: 048
     Dates: start: 20081201
  2. REVLIMID [Suspect]
     Indication: MULTIPLE MYELOMA
     Dosage: 25 MG, 1 IN 1 D, PO 15 MG, 1 IN 1 D, PO 25 MG, DAILY ON DAYS 1-21 OF 28 DAY CYCLE, PO
     Route: 048
     Dates: start: 20081101
  3. REVLIMID [Suspect]
     Indication: MULTIPLE MYELOMA
     Dosage: 25 MG, 1 IN 1 D, PO 15 MG, 1 IN 1 D, PO 25 MG, DAILY ON DAYS 1-21 OF 28 DAY CYCLE, PO
     Route: 048
     Dates: start: 20110302
  4. REVLIMID [Suspect]
     Indication: MULTIPLE MYELOMA
     Dosage: 25 MG, 1 IN 1 D, PO 15 MG, 1 IN 1 D, PO 25 MG, DAILY ON DAYS 1-21 OF 28 DAY CYCLE, PO
     Route: 048
     Dates: start: 20101201, end: 20110207

REACTIONS (2)
  - PNEUMONIA [None]
  - INFLUENZA [None]
